FAERS Safety Report 8960935 (Version 2)
Quarter: 2017Q4

REPORT INFORMATION
  Report Type: Report from Study
  Country: JP (occurrence: JP)
  Receive Date: 20121212
  Receipt Date: 20171114
  Transmission Date: 20180321
  Serious: Yes (Hospitalization, Other)
  Sender: FDA-Public Use
  Company Number: JP-PFIZER INC-2012305690

PATIENT
  Age: 58 Year
  Sex: Male
  Weight: 62 kg

DRUGS (6)
  1. TORISEL [Suspect]
     Active Substance: TEMSIROLIMUS
     Indication: RENAL CELL CARCINOMA
     Dosage: 25 MG, DAILY
     Route: 041
     Dates: start: 20111108, end: 20111220
  2. BLOPRESS [Concomitant]
     Active Substance: CANDESARTAN CILEXETIL
     Indication: HYPERTENSION
     Dosage: 8 MG, 2X/DAY
     Route: 048
  3. POLARAMINE [Concomitant]
     Active Substance: DEXCHLORPHENIRAMINE MALEATE
     Dosage: 5 MG, 1X/DAY (ONLY ON THE DAYS FOR TEMSIROLIMUS ADMINISTRATION)
     Route: 042
  4. ZOMETA [Concomitant]
     Active Substance: ZOLEDRONIC ACID
     Indication: RENAL CELL CARCINOMA
     Dosage: 3.2 MG, 1X/DAY
     Route: 042
  5. PREDNIN [Suspect]
     Active Substance: PREDNISOLONE SODIUM PHOSPHATE
     Indication: RENAL CELL CARCINOMA
     Dosage: 20 MG, 2X/DAY
     Route: 048
  6. LIPITOR [Concomitant]
     Active Substance: ATORVASTATIN CALCIUM
     Indication: HYPERLIPIDAEMIA
     Dosage: 5 MG, 1X/DAY
     Route: 048

REACTIONS (2)
  - Pneumocystis jirovecii pneumonia [Recovered/Resolved]
  - Hyperglycaemia [Recovered/Resolved]

NARRATIVE: CASE EVENT DATE: 20111206
